FAERS Safety Report 13551244 (Version 3)
Quarter: 2017Q2

REPORT INFORMATION
  Report Type: Report from Study
  Country: US (occurrence: US)
  Receive Date: 20170516
  Receipt Date: 20170619
  Transmission Date: 20170830
  Serious: Yes (Hospitalization, Other)
  Sender: FDA-Public Use
  Company Number: US-VERTEX PHARMACEUTICALS-2017-002262

PATIENT
  Sex: Male
  Weight: 53 kg

DRUGS (35)
  1. ADALAT CC [Concomitant]
     Active Substance: NIFEDIPINE
     Dosage: 60 MG, QD
     Route: 048
     Dates: start: 20170106
  2. SENOKOT [Concomitant]
     Active Substance: SENNOSIDES
     Dosage: 2 DF, NIGHTLY
     Route: 048
  3. MIRALAX [Concomitant]
     Active Substance: POLYETHYLENE GLYCOL 3350
     Dosage: 17 G, TID
  4. LASIX [Concomitant]
     Active Substance: FUROSEMIDE
     Dosage: 1 DF, BID
     Route: 048
     Dates: start: 20161130, end: 2017
  5. NEURONTIN [Concomitant]
     Active Substance: GABAPENTIN
     Dosage: 1 DF, TID
     Route: 048
     Dates: start: 20170225, end: 2017
  6. APRESOLINE HYDROCHLORIDE [Concomitant]
     Active Substance: HYDRALAZINE HYDROCHLORIDE
     Dosage: 1 DF (100MG), TID
     Route: 048
     Dates: start: 20161116
  7. SYNTHROID [Concomitant]
     Active Substance: LEVOTHYROXINE SODIUM
     Dosage: 1 DF, QD
     Route: 048
     Dates: start: 20160915
  8. ADEKS [Concomitant]
     Dosage: 1 DF, BID
     Route: 048
     Dates: start: 20160915, end: 2017
  9. APRESOLINE HYDROCHLORIDE [Concomitant]
     Active Substance: HYDRALAZINE HYDROCHLORIDE
     Dosage: 1 DF (50MG), TID
     Route: 048
  10. HUMALOG [Concomitant]
     Active Substance: INSULIN LISPRO
     Dosage: TAKE 1 UNIT FOR EVERY 12 GRAMS ,TAKE UP TO 50 UNITS DAILY
     Dates: start: 20160915, end: 2017
  11. VANCOMYCIN [Concomitant]
     Active Substance: VANCOMYCIN
     Dosage: 250 MG, BID
     Route: 055
     Dates: start: 20170217, end: 2017
  12. NOVOLOG [Concomitant]
     Active Substance: INSULIN ASPART
     Dosage: INJECT 0-6 UNITS UNDER THE SKIN, WITH SNACKS AS NEEDED
     Route: 058
  13. NOVOLOG [Concomitant]
     Active Substance: INSULIN ASPART
     Dosage: INJECT 1-15 UNITS UNDER THE SKIN, TID DURING MEALS
     Route: 058
  14. NEPHRO-VITE [Concomitant]
     Dosage: 1 DF, QD
     Route: 048
  15. ROCALTROL [Concomitant]
     Active Substance: CALCITRIOL
     Dosage: 1 ?G DAILY
     Route: 048
     Dates: start: 20170123, end: 2017
  16. TUMS [Concomitant]
     Active Substance: CALCIUM CARBONATE
     Dosage: 1000 MG, BID
     Dates: end: 2017
  17. COREG [Concomitant]
     Active Substance: CARVEDILOL
     Dosage: 6.25 MG, BID,WITH MEALS
     Route: 048
     Dates: start: 20170106, end: 2017
  18. MONODOX [Concomitant]
     Active Substance: DOXYCYCLINE
     Dosage: UNK
     Route: 048
     Dates: start: 20170106, end: 2017
  19. NPH INSULIN [Concomitant]
     Active Substance: INSULIN BEEF
     Dosage: INJECT 5 UNITS UNDER THE SKIN TWICE DAILY
     Route: 058
     Dates: start: 20160915
  20. NPH INSULIN [Concomitant]
     Active Substance: INSULIN BEEF
     Dosage: TAKE 10 UNITS IN THE MORNING AND 8 UNITS WITH DINNER
     Route: 058
  21. ADALAT CC [Concomitant]
     Active Substance: NIFEDIPINE
     Dosage: 60 MG, BID
     Route: 048
  22. VITAMIN D2 [Concomitant]
     Active Substance: ERGOCALCIFEROL
     Dosage: 1 DF, QW
     Route: 048
  23. COLACE [Concomitant]
     Active Substance: DOCUSATE SODIUM
     Dosage: 1 DF, BID
     Route: 048
  24. NOVOLOG [Concomitant]
     Active Substance: INSULIN ASPART
     Dosage: INJECT 0-30 UNITS UNDER THE SKIN, TID DURING MEALS
     Route: 058
  25. NOVOLOG [Concomitant]
     Active Substance: INSULIN ASPART
     Dosage: INJECT 0-30 UNITS UNDER THE SKIN WITH SNACKS, PRN
     Route: 058
  26. RENVELA [Concomitant]
     Active Substance: SEVELAMER CARBONATE
     Dosage: 1 DF, TID
     Route: 048
     Dates: start: 20161130
  27. CARMOL [Concomitant]
     Dosage: APPLY TO THE FEET AT NIGHT
     Dates: start: 20170125
  28. CAYSTON [Concomitant]
     Active Substance: AZTREONAM
     Dosage: UNK
     Route: 055
     Dates: start: 20161101
  29. PULMOZYME [Concomitant]
     Active Substance: DORNASE ALFA
     Dosage: INHALE INTO THE LUNGS NIGHTLY
     Route: 055
     Dates: start: 20160929
  30. RENVELA [Concomitant]
     Active Substance: SEVELAMER CARBONATE
     Dosage: 2 DF, TID
     Route: 048
  31. ORKAMBI [Suspect]
     Active Substance: IVACAFTOR\LUMACAFTOR
     Indication: CYSTIC FIBROSIS
     Dosage: UNK
     Route: 048
     Dates: start: 20151201, end: 20170216
  32. SODIUM BICARBONATE. [Concomitant]
     Active Substance: SODIUM BICARBONATE
     Dosage: 2 DF, BID
     Route: 048
     Dates: start: 20161116, end: 2017
  33. SODIUM CHLORIDE. [Concomitant]
     Active Substance: SODIUM CHLORIDE
     Dosage: UNK
     Dates: start: 20170106
  34. ZENPEP [Concomitant]
     Active Substance: PANCRELIPASE AMYLASE\PANCRELIPASE LIPASE\PANCRELIPASE PROTEASE
     Dosage: 3 DF WITH MEALS AND  SNACKS
     Route: 048
     Dates: start: 20160915
  35. OCEAN SALINE NASAL SPRAY [Concomitant]
     Active Substance: SODIUM CHLORIDE
     Indication: RESPIRATORY TRACT CONGESTION
     Dosage: 2 SPRAYS BY EACH NARE, QID PRN

REACTIONS (15)
  - Blood pressure increased [Recovering/Resolving]
  - Dyspnoea [Recovered/Resolved]
  - Blood alkaline phosphatase increased [Unknown]
  - Gamma-glutamyltransferase increased [Unknown]
  - Fatigue [Recovered/Resolved]
  - Forced expiratory volume decreased [Unknown]
  - International normalised ratio increased [Recovered/Resolved]
  - Respiratory symptom [Recovered/Resolved]
  - Dyspnoea exertional [Unknown]
  - Pneumonia [Recovered/Resolved]
  - Infective pulmonary exacerbation of cystic fibrosis [Unknown]
  - Gangrene [Unknown]
  - Peripheral vascular disorder [Unknown]
  - Staphylococcus test positive [Recovered/Resolved]
  - Weight decreased [Recovered/Resolved]

NARRATIVE: CASE EVENT DATE: 2016
